FAERS Safety Report 13444661 (Version 1)
Quarter: 2017Q2

REPORT INFORMATION
  Report Type: Spontaneous
  Country: US (occurrence: US)
  Receive Date: 20170414
  Receipt Date: 20170414
  Transmission Date: 20170830
  Serious: Yes (Other)
  Sender: FDA-Public Use
  Company Number: US-TEVA-760575USA

PATIENT
  Age: 54 Year
  Sex: Female

DRUGS (8)
  1. BUDEPRION SR [Concomitant]
     Active Substance: BUPROPION HYDROCHLORIDE
     Route: 065
  2. ADVAIR HFA [Concomitant]
     Active Substance: FLUTICASONE PROPIONATE\SALMETEROL XINAFOATE
     Route: 065
  3. AVAPRO [Concomitant]
     Active Substance: IRBESARTAN
     Dosage: 150 (UNITS NOT PROVIDED)
     Route: 065
  4. FEXOFENADINE [Concomitant]
     Active Substance: FEXOFENADINE\FEXOFENADINE HYDROCHLORIDE
     Route: 065
  5. KLONOPIN [Concomitant]
     Active Substance: CLONAZEPAM
     Route: 065
  6. PULMICORT TURBUHALER [Concomitant]
     Active Substance: BUDESONIDE
     Route: 065
  7. COPAXONE [Suspect]
     Active Substance: GLATIRAMER ACETATE
     Indication: MULTIPLE SCLEROSIS
     Route: 058
     Dates: start: 201407
  8. ALBUTEROL. [Concomitant]
     Active Substance: ALBUTEROL
     Route: 065

REACTIONS (12)
  - Macular degeneration [Unknown]
  - Migraine [Unknown]
  - Injection site mass [Unknown]
  - Affect lability [Unknown]
  - Limb discomfort [Unknown]
  - Injection site urticaria [Unknown]
  - Gait disturbance [Unknown]
  - Injection site pruritus [Unknown]
  - Injection site pain [Unknown]
  - Hypoaesthesia [Unknown]
  - Depression [Unknown]
  - Fatigue [Unknown]

NARRATIVE: CASE EVENT DATE: 20170217
